FAERS Safety Report 10063969 (Version 2)
Quarter: 2014Q2

REPORT INFORMATION
  Report Type: Spontaneous
  Country: US (occurrence: US)
  Receive Date: 20140408
  Receipt Date: 20140514
  Transmission Date: 20141212
  Serious: No
  Sender: FDA-Public Use
  Company Number: US-BIOGENIDEC-2014BI032963

PATIENT
  Sex: Female

DRUGS (1)
  1. TYSABRI [Suspect]
     Indication: PRODUCT USED FOR UNKNOWN INDICATION
     Route: 042
     Dates: start: 20130705, end: 20130903

REACTIONS (5)
  - Muscle spasms [Unknown]
  - Drug specific antibody present [Unknown]
  - Drug ineffective [Unknown]
  - Hypotension [Unknown]
  - Flushing [Unknown]
